FAERS Safety Report 22976544 (Version 2)
Quarter: 2023Q4

REPORT INFORMATION
  Report Type: Report from Study
  Country: TR (occurrence: TR)
  Receive Date: 20230925
  Receipt Date: 20231010
  Transmission Date: 20240110
  Serious: Yes (Hospitalization, Other)
  Sender: FDA-Public Use
  Company Number: TR-002147023-NVSC2023TR199675

PATIENT
  Age: 60 Year
  Sex: Female
  Weight: 59.7 kg

DRUGS (5)
  1. AZACITIDINE [Suspect]
     Active Substance: AZACITIDINE
     Indication: Myelodysplastic syndrome
     Dosage: 127.5 MG
     Route: 042
     Dates: start: 20220117
  2. DEFERASIROX [Concomitant]
     Active Substance: DEFERASIROX
     Indication: Prophylaxis
     Dosage: UNK
     Route: 065
     Dates: start: 20220526
  3. FILGRASTIM [Concomitant]
     Active Substance: FILGRASTIM
     Indication: Neutropenia
     Dosage: UNK
     Route: 065
     Dates: start: 20230914
  4. FILGRASTIM [Concomitant]
     Active Substance: FILGRASTIM
     Dosage: UNK
     Route: 065
     Dates: start: 20230825, end: 20230829
  5. PIPERACILLIN [Concomitant]
     Active Substance: PIPERACILLIN
     Indication: Pyrexia
     Dosage: UNK
     Route: 065
     Dates: start: 20230214

REACTIONS (1)
  - Enterocolitis [Recovered/Resolved]

NARRATIVE: CASE EVENT DATE: 20230914
